FAERS Safety Report 16800613 (Version 3)
Quarter: 2020Q1

REPORT INFORMATION
  Report Type: Report from Study
  Country: JP (occurrence: JP)
  Receive Date: 20190912
  Receipt Date: 20200312
  Transmission Date: 20200409
  Serious: Yes (Other)
  Sender: FDA-Public Use
  Company Number: JP-BRISTOL-MYERS SQUIBB COMPANY-BMS-2019-072619

PATIENT
  Age: 83 Year
  Sex: Male
  Weight: 54 kg

DRUGS (2)
  1. IPILIMUMAB [Suspect]
     Active Substance: IPILIMUMAB
     Indication: METASTATIC RENAL CELL CARCINOMA
     Dosage: 1 MILLIGRAM/KILOGRAM, (25-MAR-2019, 23-APR, 11-MAY, 08-JUN)
     Route: 041
     Dates: start: 20190325, end: 20190608
  2. NIVOLUMAB [Suspect]
     Active Substance: NIVOLUMAB
     Indication: METASTATIC RENAL CELL CARCINOMA
     Dosage: 240 MILLIGRAM, (25-MAR-2019, 23-APR, 11-MAY, 08-JUN)
     Route: 041
     Dates: start: 20190325, end: 20190608

REACTIONS (4)
  - Stomatitis [Unknown]
  - Neutrophil count decreased [Recovered/Resolved]
  - Fatigue [Unknown]
  - Decreased appetite [Unknown]

NARRATIVE: CASE EVENT DATE: 20190625
